FAERS Safety Report 15888171 (Version 2)
Quarter: 2019Q1

REPORT INFORMATION
  Report Type: Report from Study
  Country: US (occurrence: US)
  Receive Date: 20190130
  Receipt Date: 20190201
  Transmission Date: 20190417
  Serious: Yes (Death, Other)
  Sender: FDA-Public Use
  Company Number: US-GILEAD-2019-0387561

PATIENT
  Age: 84 Year
  Sex: Female

DRUGS (19)
  1. LEVOTHYROXINE. [Concomitant]
     Active Substance: LEVOTHYROXINE
  2. GABAPENTIN. [Concomitant]
     Active Substance: GABAPENTIN
  3. AMIODARONE [Concomitant]
     Active Substance: AMIODARONE
  4. CARVEDILOL. [Concomitant]
     Active Substance: CARVEDILOL
  5. ROSUVASTATIN. [Concomitant]
     Active Substance: ROSUVASTATIN
  6. SPIRONOLACTONE AND HYDROCHLOROTHIAZIDE [Concomitant]
     Active Substance: HYDROCHLOROTHIAZIDE\SPIRONOLACTONE
  7. LEVEMIR [Concomitant]
     Active Substance: INSULIN DETEMIR
  8. MULTIVITAMINS [VITAMINS NOS] [Concomitant]
     Active Substance: VITAMINS
  9. TRAMADOL. [Concomitant]
     Active Substance: TRAMADOL
  10. ULORIC [Concomitant]
     Active Substance: FEBUXOSTAT
  11. DOCUSATE [Concomitant]
     Active Substance: DOCUSATE
  12. LASIX [Concomitant]
     Active Substance: FUROSEMIDE
  13. AMBRISENTAN [Suspect]
     Active Substance: AMBRISENTAN
     Indication: PRODUCT USED FOR UNKNOWN INDICATION
     Dosage: 5 MG
     Route: 065
     Dates: start: 20180629
  14. CYMBALTA [Concomitant]
     Active Substance: DULOXETINE HYDROCHLORIDE
  15. FISH OIL [Concomitant]
     Active Substance: FISH OIL
  16. WARFARIN [Concomitant]
     Active Substance: WARFARIN
  17. ADCIRCA [Concomitant]
     Active Substance: TADALAFIL
  18. FERROUS SULFATE. [Concomitant]
     Active Substance: FERROUS SULFATE
  19. CALCIUM + VIT D [Concomitant]
     Active Substance: CALCIUM\VITAMIN D

REACTIONS (1)
  - Death [Fatal]
